FAERS Safety Report 25263190 (Version 2)
Quarter: 2025Q3

REPORT INFORMATION
  Report Type: Spontaneous
  Country: US (occurrence: US)
  Receive Date: 20250502
  Receipt Date: 20250816
  Transmission Date: 20251020
  Serious: No
  Sender: ALEXION PHARMACEUTICALS
  Company Number: US-AstraZeneca-CH-00857867A

PATIENT
  Sex: Male

DRUGS (2)
  1. CALQUENCE [Suspect]
     Active Substance: ACALABRUTINIB
     Route: 065
  2. ACYCLOVIR [Concomitant]
     Active Substance: ACYCLOVIR
     Route: 065

REACTIONS (6)
  - Gastrooesophageal reflux disease [Unknown]
  - Feeling abnormal [Unknown]
  - Product dose omission issue [Unknown]
  - Terminal insomnia [Unknown]
  - Adverse drug reaction [Unknown]
  - Dizziness [Unknown]
